FAERS Safety Report 5604044-3 (Version None)
Quarter: 2008Q1

REPORT INFORMATION
  Report Type: 
  Country: None (occurrence: None)
  Receive Date: 20080128
  Receipt Date: 20080115
  Transmission Date: 20080703
  Serious: Yes (Hospitalization)
  Sender: FDA-Public Use
  Company Number: PHHO2007IT13072

PATIENT
  Age: 10 Year
  Sex: Female

DRUGS (2)
  1. EXJADE [Suspect]
     Indication: BLOOD IRON INCREASED
     Dosage: 500 MG, QD
     Dates: start: 20061214, end: 20070730
  2. CIPROFLOXACIN [Concomitant]
     Indication: URINARY TRACT INFECTION
     Dosage: 250 MG, BID
     Route: 048
     Dates: start: 20070731, end: 20070801

REACTIONS (3)
  - DIARRHOEA [None]
  - GASTROINTESTINAL HAEMORRHAGE [None]
  - MELAENA [None]
